FAERS Safety Report 6563194-8 (Version None)
Quarter: 2010Q1

REPORT INFORMATION
  Report Type: 
  Country: None (occurrence: None)
  Receive Date: 20100130
  Receipt Date: 20091204
  Transmission Date: 20100710
  Serious: No
  Sender: FDA-Public Use
  Company Number: US-ABBOTT-09P-163-0613147-00

PATIENT
  Sex: Male
  Weight: 136.2 kg

DRUGS (3)
  1. HUMIRA [Suspect]
     Indication: PSORIASIS
     Route: 058
     Dates: start: 20080101, end: 20090701
  2. HUMIRA [Suspect]
     Route: 058
     Dates: start: 20090701
  3. HUMIRA [Suspect]
     Route: 058

REACTIONS (2)
  - LOWER RESPIRATORY TRACT INFECTION [None]
  - PSORIASIS [None]
